FAERS Safety Report 9776698 (Version 2)
Quarter: 2014Q1

REPORT INFORMATION
  Report Type: Spontaneous
  Country: DK (occurrence: DK)
  Receive Date: 20131220
  Receipt Date: 20140304
  Transmission Date: 20141002
  Serious: Yes (Hospitalization)
  Sender: FDA-Public Use
  Company Number: PHHY2013DK147583

PATIENT
  Age: 78 Year
  Sex: Female

DRUGS (5)
  1. MIRTAZAPINE SANDOZ [Suspect]
     Indication: DEPRESSION
     Dosage: 15 MG, DAILY
  2. MIRTAZAPINE SANDOZ [Interacting]
     Dosage: 30 MG, DAILY
  3. MIRTAZAPINE SANDOZ [Interacting]
     Dosage: 45 MG, DAILY
  4. VENLAFAXIN KRKA [Interacting]
     Dosage: 150 MG, QD
  5. VENLAFAXIN KRKA [Interacting]
     Dosage: 75 MG, UNK
     Dates: end: 201312

REACTIONS (9)
  - Depression [Unknown]
  - Fall [Unknown]
  - Loss of consciousness [Unknown]
  - Balance disorder [Recovered/Resolved]
  - Memory impairment [Recovered/Resolved]
  - Decreased appetite [Recovered/Resolved]
  - Confusional state [Recovered/Resolved]
  - Fatigue [Recovered/Resolved]
  - Drug interaction [Recovered/Resolved]
